FAERS Safety Report 11254479 (Version 2)
Quarter: 2015Q3

REPORT INFORMATION
  Report Type: Spontaneous
  Country: US (occurrence: US)
  Receive Date: 20150709
  Receipt Date: 20150715
  Transmission Date: 20151125
  Serious: No
  Sender: FDA-Public Use
  Company Number: US-PFIZER INC-2015227324

PATIENT
  Age: 53 Year
  Sex: Female

DRUGS (2)
  1. ADVIL PM [Suspect]
     Active Substance: DIPHENHYDRAMINE CITRATE\IBUPROFEN
     Indication: INSOMNIA
  2. ADVIL PM [Suspect]
     Active Substance: DIPHENHYDRAMINE CITRATE\IBUPROFEN
     Indication: PAIN
     Dosage: 2 TABLETS WITH A GLASS OF WATER AT NIGHT
     Dates: start: 2015, end: 201507

REACTIONS (2)
  - Stress [Unknown]
  - Drug ineffective [Not Recovered/Not Resolved]
